FAERS Safety Report 9321329 (Version 1)
Quarter: 2013Q2

REPORT INFORMATION
  Report Type: Spontaneous
  Country: SG (occurrence: SG)
  Receive Date: 20130531
  Receipt Date: 20130531
  Transmission Date: 20140414
  Serious: Yes (Other)
  Sender: FDA-Public Use
  Company Number: SG-ABBOTT-13X-141-1096737-00

PATIENT
  Age: 59 Year
  Sex: Male

DRUGS (7)
  1. SODIUM VALPROATE [Suspect]
     Indication: AFFECTIVE DISORDER
  2. LITHIUM (SALT NOT SPECIFIED) [Suspect]
     Indication: AFFECTIVE DISORDER
  3. CARBAMAZEPINE [Suspect]
     Indication: AFFECTIVE DISORDER
  4. RISPERIDONE [Suspect]
     Indication: PSYCHOTIC DISORDER
  5. QUETIAPINE [Suspect]
     Indication: PSYCHOTIC DISORDER
  6. HALOPERIDOL [Suspect]
     Indication: AGITATION
     Dosage: 2.5 MILLIGRAM (S) ; DAILY
     Route: 048
     Dates: end: 2011
  7. HALOPERIDOL [Suspect]
     Dosage: 3 MILLIGRAM (S) ; DAILY
     Route: 048
     Dates: start: 2011

REACTIONS (4)
  - Extrapyramidal disorder [Unknown]
  - Stevens-Johnson syndrome [Unknown]
  - Orthostatic hypotension [Unknown]
  - Rash maculo-papular [Unknown]
